FAERS Safety Report 10575926 (Version 1)
Quarter: 2014Q4

REPORT INFORMATION
  Report Type: Spontaneous
  Country: US (occurrence: None)
  Receive Date: 20141110
  Receipt Date: 20141110
  Transmission Date: 20150529
  Serious: No
  Sender: FDA-Public Use
  Company Number: None

PATIENT
  Age: 60 Year
  Sex: Female
  Weight: 91.3 kg

DRUGS (2)
  1. CYTARABINE. [Suspect]
     Active Substance: CYTARABINE
     Dates: start: 20141029
  2. DAUNORUBICINE [Suspect]
     Active Substance: DAUNORUBICIN
     Dates: start: 20141025

REACTIONS (5)
  - Febrile neutropenia [None]
  - Colitis [None]
  - Shock [None]
  - Diarrhoea [None]
  - Confusional state [None]

NARRATIVE: CASE EVENT DATE: 20141104
